FAERS Safety Report 9185186 (Version 1)
Quarter: 2012Q4

REPORT INFORMATION
  Report Type: 
  Country: US (occurrence: US)
  Receive Date: 20121101
  Receipt Date: 20121101
  Transmission Date: 20130627
  Serious: Yes (Other)
  Sender: FDA-Public Use
  Company Number: US-ELI_LILLY_AND_COMPANY-US201210008091

PATIENT
  Sex: Female
  Weight: 59.41 kg

DRUGS (6)
  1. ADCIRCA [Suspect]
     Indication: PULMONARY HYPERTENSION
     Dosage: 20 mg, bid
     Dates: start: 20120411, end: 20121007
  2. FEMARA [Concomitant]
     Dosage: 2.5 mg, qd
  3. VENLAFAXINE [Concomitant]
     Dosage: 50 mg, bid
  4. LEVOTHYROXINE [Concomitant]
     Dosage: 88 ug, qd
  5. CLONAZEPAM [Concomitant]
     Dosage: 1 DF, prn
  6. HYDROCODONE [Concomitant]
     Dosage: 1 DF, prn

REACTIONS (1)
  - Cardiac failure congestive [Unknown]
